FAERS Safety Report 9957153 (Version 1)
Quarter: 2014Q1

REPORT INFORMATION
  Report Type: Report from Study
  Country: US (occurrence: US)
  Receive Date: 20140304
  Receipt Date: 20140304
  Transmission Date: 20141002
  Serious: No
  Sender: FDA-Public Use
  Company Number: US-ABBVIE-13P-163-1096633-00

PATIENT
  Age: 26 Year
  Sex: Male

DRUGS (3)
  1. HUMIRA [Suspect]
     Indication: CROHN^S DISEASE
     Dates: start: 2010, end: 201210
  2. ANTIDEPRESSANTS [Concomitant]
     Indication: DEPRESSION
  3. MARIJUANA [Concomitant]
     Indication: CROHN^S DISEASE
     Route: 055

REACTIONS (8)
  - Irritability [Unknown]
  - Aggression [Unknown]
  - Incoherent [Unknown]
  - Verbal abuse [Unknown]
  - Insomnia [Not Recovered/Not Resolved]
  - Crohn^s disease [Recovering/Resolving]
  - Diarrhoea [Recovering/Resolving]
  - Vomiting [Recovered/Resolved]
